FAERS Safety Report 8365366-9 (Version None)
Quarter: 2012Q2

REPORT INFORMATION
  Report Type: 
  Country: None (occurrence: None)
  Receive Date: 20120516
  Receipt Date: 20120504
  Transmission Date: 20120825
  Serious: Yes (Hospitalization)
  Sender: FDA-Public Use
  Company Number: US-BRISTOL-MYERS SQUIBB COMPANY-16557324

PATIENT
  Age: 46 Year
  Sex: Female
  Weight: 139 kg

DRUGS (17)
  1. CRESTOR [Concomitant]
  2. ENALAPRIL MALEATE [Concomitant]
  3. FUROSEMIDE [Concomitant]
  4. METFORMIN HCL [Concomitant]
  5. GABAPENTIN [Concomitant]
     Dosage: 1DF=1TAB
  6. POTASSIUM CHLORIDE [Concomitant]
  7. CENTRUM [Concomitant]
     Dosage: MULTI SUPPLEMENT
  8. METOPROLOL TARTRATE [Concomitant]
  9. TRICOR [Concomitant]
  10. FELODIPINE [Concomitant]
  11. LASIX [Concomitant]
     Indication: FLUID RETENTION
     Dosage: INCREASED TO 80MG 27APR2012
  12. WELCHOL [Concomitant]
  13. EQUATE [Concomitant]
  14. SPRYCEL [Suspect]
     Indication: CHRONIC MYELOID LEUKAEMIA
     Dosage: LAST DOSE ON 28APR2012
     Dates: start: 20111201
  15. KLOR-CON M [Concomitant]
     Dosage: KLOR-CON M20
  16. METOLAZONE [Concomitant]
     Dosage: ONE ON MONDAY AND THURSDAY
  17. HYDRALAZINE HCL [Concomitant]

REACTIONS (7)
  - PAIN IN EXTREMITY [None]
  - DEHYDRATION [None]
  - RENAL FAILURE [None]
  - MUSCLE TWITCHING [None]
  - FLUID RETENTION [None]
  - PLEURAL EFFUSION [None]
  - WEIGHT INCREASED [None]
